FAERS Safety Report 7608603-8 (Version None)
Quarter: 2011Q3

REPORT INFORMATION
  Report Type: 
  Country: None (occurrence: None)
  Receive Date: 20110714
  Receipt Date: 20110706
  Transmission Date: 20111222
  Serious: Yes (Other)
  Sender: FDA-Public Use
  Company Number: PHHY2011US15886

PATIENT
  Sex: Female

DRUGS (5)
  1. ENABLEX [Concomitant]
  2. JANUMET [Concomitant]
  3. RECLAST [Suspect]
     Dosage: 5 MG/100ML PER YEAR
     Route: 042
     Dates: start: 20101228
  4. GLIMEPIRIDE [Concomitant]
  5. SIMVASTATIN [Concomitant]

REACTIONS (1)
  - BREAST CANCER [None]
